FAERS Safety Report 4597590-5 (Version None)
Quarter: 2005Q1

REPORT INFORMATION
  Report Type: 
  Country: None (occurrence: None)
  Receive Date: 20050228
  Receipt Date: 20050228
  Transmission Date: 20050727
  Serious: Yes (Other)
  Sender: FDA-Public Use
  Company Number: None

PATIENT
  Sex: Female
  Weight: 86.1834 kg

DRUGS (4)
  1. ZOLOFT [Suspect]
     Indication: DEPRESSION
     Dosage: ONE PER DAY ORAL
     Route: 048
     Dates: start: 20040401, end: 20050218
  2. SYNTHROID [Concomitant]
  3. WELLBUTRIN XL [Concomitant]
  4. LOESTRIN 1.5/30 [Concomitant]

REACTIONS (3)
  - DIZZINESS [None]
  - INFLUENZA LIKE ILLNESS [None]
  - NAUSEA [None]
